FAERS Safety Report 14507851 (Version 1)
Quarter: 2018Q1

REPORT INFORMATION
  Report Type: Spontaneous
  Country: US (occurrence: US)
  Receive Date: 20180208
  Receipt Date: 20180208
  Transmission Date: 20180509
  Serious: Yes (Hospitalization, Other)
  Sender: FDA-Public Use
  Company Number: US-ASTRAZENECA-2018SE15622

PATIENT
  Age: 66 Year
  Sex: Male
  Weight: 103.4 kg

DRUGS (8)
  1. OXYCODONE [Suspect]
     Active Substance: OXYCODONE
     Route: 065
  2. OMEPRAZOLE. [Suspect]
     Active Substance: OMEPRAZOLE
     Indication: GASTROOESOPHAGEAL REFLUX DISEASE
     Route: 048
  3. OMEPRAZOLE. [Suspect]
     Active Substance: OMEPRAZOLE
     Indication: GASTROOESOPHAGEAL REFLUX DISEASE
     Dosage: UNKNOWN
     Route: 048
  4. CIALIS [Concomitant]
     Active Substance: TADALAFIL
     Indication: URINARY INCONTINENCE
     Route: 048
     Dates: start: 2017
  5. BRILINTA [Suspect]
     Active Substance: TICAGRELOR
     Indication: STENT PLACEMENT
     Route: 048
     Dates: start: 20170221
  6. ASPIRIN. [Concomitant]
     Active Substance: ASPIRIN
     Indication: ILL-DEFINED DISORDER
     Route: 048
  7. PRILOSEC OTC [Suspect]
     Active Substance: OMEPRAZOLE MAGNESIUM
     Indication: GASTROOESOPHAGEAL REFLUX DISEASE
     Dosage: UNKNOWN
     Route: 048
  8. DEXILANT [Concomitant]
     Active Substance: DEXLANSOPRAZOLE
     Indication: GASTROOESOPHAGEAL REFLUX DISEASE
     Route: 048

REACTIONS (16)
  - Asthenia [Recovered/Resolved]
  - Angina pectoris [Recovered/Resolved]
  - Joint stiffness [Not Recovered/Not Resolved]
  - Prostate cancer [Unknown]
  - Barrett^s oesophagus [Unknown]
  - Feeling abnormal [Recovered/Resolved]
  - Fatigue [Recovered/Resolved]
  - Urinary incontinence [Unknown]
  - Arthropathy [Unknown]
  - Anxiety [Unknown]
  - White blood cell count decreased [Recovered/Resolved]
  - Platelet count decreased [Unknown]
  - Blood iron decreased [Recovered/Resolved]
  - Red blood cell count decreased [Unknown]
  - Tendonitis [Unknown]
  - Benign prostatic hyperplasia [Unknown]

NARRATIVE: CASE EVENT DATE: 2010
